FAERS Safety Report 23311977 (Version 1)
Quarter: 2023Q4

REPORT INFORMATION
  Report Type: Spontaneous
  Country: US (occurrence: US)
  Receive Date: 20231219
  Receipt Date: 20231219
  Transmission Date: 20240109
  Serious: Yes (Other)
  Sender: FDA-Public Use
  Company Number: US-TEVA-VS-3136103

PATIENT

DRUGS (5)
  1. ADDERALL [Suspect]
     Active Substance: AMPHETAMINE ASPARTATE\AMPHETAMINE SULFATE\DEXTROAMPHETAMINE SACCHARATE\DEXTROAMPHETAMINE SULFATE
     Indication: Mental disorder
     Route: 065
  2. DEPAKOTE [Suspect]
     Active Substance: DIVALPROEX SODIUM
     Indication: Mental disorder
     Route: 065
  3. RISPERDAL [Suspect]
     Active Substance: RISPERIDONE
     Indication: Mental disorder
     Route: 065
  4. RITALIN [Suspect]
     Active Substance: METHYLPHENIDATE HYDROCHLORIDE
     Indication: Mental disorder
     Route: 065
  5. ZOLOFT [Suspect]
     Active Substance: SERTRALINE HYDROCHLORIDE
     Indication: Mental disorder
     Route: 065

REACTIONS (12)
  - Postural orthostatic tachycardia syndrome [Unknown]
  - Dystonia [Unknown]
  - Gynaecomastia [Unknown]
  - Tardive dyskinesia [Unknown]
  - Skin wrinkling [Unknown]
  - Olfacto genital dysplasia [Unknown]
  - Intermittent claudication [Unknown]
  - Weight increased [Unknown]
  - Multiple sclerosis [Unknown]
  - Marfan^s syndrome [Unknown]
  - Guillain-Barre syndrome [Unknown]
  - Myasthenia gravis [Unknown]
